FAERS Safety Report 7605993-7 (Version None)
Quarter: 2011Q3

REPORT INFORMATION
  Report Type: 
  Country: None (occurrence: None)
  Receive Date: 20110705
  Receipt Date: 20110620
  Transmission Date: 20111222
  Serious: Yes (Death, Hospitalization, Other)
  Sender: FDA-Public Use
  Company Number: 2011MA007789

PATIENT
  Age: 25 Year
  Sex: Female

DRUGS (2)
  1. BUPROPION HCL [Suspect]
     Dosage: 1350 MG;1X;PO
     Route: 048
  2. VENLAFAXINE HYDROCHLORIDE [Suspect]
     Dosage: 15750 MG; 1X;PO
     Route: 048

REACTIONS (15)
  - ABDOMINAL COMPARTMENT SYNDROME [None]
  - CARDIOTOXICITY [None]
  - ACUTE RESPIRATORY DISTRESS SYNDROME [None]
  - ELECTROCARDIOGRAM QRS COMPLEX PROLONGED [None]
  - OVERDOSE [None]
  - GASTROINTESTINAL HAEMORRHAGE [None]
  - RENAL FAILURE ACUTE [None]
  - EJECTION FRACTION DECREASED [None]
  - DISSEMINATED INTRAVASCULAR COAGULATION [None]
  - GASTROINTESTINAL OEDEMA [None]
  - DIALYSIS [None]
  - CARDIOGENIC SHOCK [None]
  - ELECTROCARDIOGRAM QT PROLONGED [None]
  - ACUTE HEPATIC FAILURE [None]
  - TACHYCARDIA [None]
